FAERS Safety Report 6918091-2 (Version None)
Quarter: 2010Q3

REPORT INFORMATION
  Report Type: 
  Country: None (occurrence: None)
  Receive Date: 20100806
  Receipt Date: 20100730
  Transmission Date: 20110219
  Serious: Yes (Other)
  Sender: FDA-Public Use
  Company Number: CL-184--2010

PATIENT
  Age: 14 Day
  Sex: Female

DRUGS (1)
  1. METRONIDAZOLE [Suspect]
     Indication: VULVOVAGINITIS TRICHOMONAL
     Dosage: 2000MG TID

REACTIONS (5)
  - CONGENITAL CARDIOVASCULAR ANOMALY [None]
  - DYSMORPHISM [None]
  - MATERNAL DRUGS AFFECTING FOETUS [None]
  - PATENT DUCTUS ARTERIOSUS [None]
  - SYNOSTOSIS [None]
